FAERS Safety Report 15976823 (Version 2)
Quarter: 2019Q1

REPORT INFORMATION
  Report Type: Spontaneous
  Country: CA (occurrence: CA)
  Receive Date: 20190218
  Receipt Date: 20190226
  Transmission Date: 20190418
  Serious: Yes (Life-Threatening, Hospitalization)
  Sender: FDA-Public Use
  Company Number: CA-TEVA-2019-CA-1010372

PATIENT
  Age: 18 Year
  Sex: Female

DRUGS (3)
  1. PAROXETINE. [Suspect]
     Active Substance: PAROXETINE
     Indication: DEPRESSION
     Route: 048
  2. ACETAMINOPHEN AND CODEINE [Concomitant]
     Active Substance: ACETAMINOPHEN\CODEINE PHOSPHATE
     Indication: MIGRAINE
     Dosage: HAD TAKEN THREE TABLETS PRIOR TO PRESENTATION
     Route: 048
  3. ESLICARBAZEPINE [Suspect]
     Active Substance: ESLICARBAZEPINE
     Indication: INTENTIONAL OVERDOSE
     Dosage: NON-EXTENDED RELEASE FORMULATION; 112MG/KG EXPOSURE; TIME OF INGESTION ESTIMATED BETWEEN 04:00 HO...
     Route: 048

REACTIONS (15)
  - Migraine [Unknown]
  - Electrocardiogram QT prolonged [Recovered/Resolved]
  - Intentional overdose [Recovering/Resolving]
  - Pulse absent [Recovered/Resolved]
  - Altered state of consciousness [Unknown]
  - Apnoea [Unknown]
  - Serotonin syndrome [Recovering/Resolving]
  - Sinus tachycardia [Recovering/Resolving]
  - Generalised tonic-clonic seizure [Recovered/Resolved]
  - Hyperglycaemia [Unknown]
  - Cardiac arrest [Recovered/Resolved]
  - Tachycardia [Recovering/Resolving]
  - Posturing [Recovered/Resolved]
  - Hypoxia [Unknown]
  - Ventricular tachycardia [Not Recovered/Not Resolved]
